FAERS Safety Report 9974106 (Version 1)
Quarter: 2014Q1

REPORT INFORMATION
  Report Type: Spontaneous
  Country: US (occurrence: US)
  Receive Date: 20140306
  Receipt Date: 20140306
  Transmission Date: 20141002
  Serious: Yes (Other)
  Sender: FDA-Public Use
  Company Number: US-GLAXOSMITHKLINE-A1063753A

PATIENT
  Age: 69 Year
  Sex: Male
  Weight: 115.5 kg

DRUGS (1)
  1. AVANDIA [Suspect]
     Indication: DIABETES MELLITUS
     Route: 048
     Dates: end: 20071105

REACTIONS (2)
  - Adverse event [Unknown]
  - Angina unstable [Unknown]
